FAERS Safety Report 9450885 (Version 2)
Quarter: 2013Q4

REPORT INFORMATION
  Report Type: Spontaneous
  Country: BR (occurrence: BR)
  Receive Date: 20130809
  Receipt Date: 20131209
  Transmission Date: 20140711
  Serious: Yes (Other)
  Sender: FDA-Public Use
  Company Number: BR-BRISTOL-MYERS SQUIBB COMPANY-19180181

PATIENT
  Age: 49 Year
  Sex: Female

DRUGS (1)
  1. GLIFAGE XR [Suspect]
     Indication: DIABETES MELLITUS
     Dosage: 2DF:1TAB: 1 DF MORNING IN FASTING AND AFTER DINNER

REACTIONS (4)
  - Head injury [Recovered/Resolved]
  - Abdominal pain [Not Recovered/Not Resolved]
  - Diarrhoea [Recovered/Resolved]
  - Hypertension [Recovered/Resolved]
